FAERS Safety Report 18249461 (Version 1)
Quarter: 2020Q3

REPORT INFORMATION
  Report Type: Spontaneous
  Country: US (occurrence: US)
  Receive Date: 20200909
  Receipt Date: 20200909
  Transmission Date: 20201103
  Serious: Yes (Other)
  Sender: FDA-Public Use
  Company Number: US-ALVOGEN-2020-ALVOGEN-114223

PATIENT
  Age: 54 Year
  Sex: Female

DRUGS (1)
  1. HYDROCODONE BITARTRATE. [Suspect]
     Active Substance: HYDROCODONE BITARTRATE
     Indication: BACK PAIN
     Dosage: 5 MG EVERY SIX TO EIGHT HOURS FOR ONE YEAR
     Route: 048

REACTIONS (2)
  - Adrenocorticotropic hormone deficiency [Recovered/Resolved]
  - Secondary adrenocortical insufficiency [Recovered/Resolved]
